FAERS Safety Report 9932148 (Version 1)
Quarter: 2014Q1

REPORT INFORMATION
  Report Type: Spontaneous
  Country: US (occurrence: US)
  Receive Date: 20140228
  Receipt Date: 20140228
  Transmission Date: 20141002
  Serious: No
  Sender: FDA-Public Use
  Company Number: US-ABBVIE-13P-163-1150468-00

PATIENT
  Age: 71 Year
  Sex: Male
  Weight: 76.27 kg

DRUGS (15)
  1. ANDROGEL [Suspect]
     Indication: BLOOD TESTOSTERONE DECREASED
     Route: 061
     Dates: start: 2001, end: 20130816
  2. ANDROGEL [Suspect]
     Route: 062
     Dates: start: 20130819
  3. NOVALOG INSULIN [Concomitant]
     Indication: DIABETES MELLITUS
     Dosage: INSULIN PUMP
  4. WELCHOL [Concomitant]
     Indication: BLOOD CHOLESTEROL
  5. CRESTOR [Concomitant]
     Indication: BLOOD CHOLESTEROL
  6. NIASPAN [Concomitant]
     Indication: BLOOD CHOLESTEROL
  7. DILTAZEM [Concomitant]
     Indication: HYPERTENSION
  8. DIOVAN [Concomitant]
     Indication: HYPERTENSION
  9. HYDROCHLOROTHIAZIDE [Concomitant]
     Indication: HYPERTENSION
  10. NEXIUM [Concomitant]
     Indication: DYSPEPSIA
  11. VALACYCLOVIR HCL PHARMA PAC [Concomitant]
     Indication: HERPES OPHTHALMIC
  12. UNKNOWN MEDICATION [Concomitant]
     Indication: ASTHMA
  13. DULERA INHALAR [Concomitant]
     Indication: ASTHMA
  14. ASPIRIN [Concomitant]
     Indication: ANGIOPATHY
     Route: 048
  15. MULTIVITAMIN [Concomitant]
     Indication: VITAMIN SUPPLEMENTATION

REACTIONS (2)
  - Drug effect decreased [Not Recovered/Not Resolved]
  - Blood testosterone decreased [Not Recovered/Not Resolved]
